FAERS Safety Report 4490193-2 (Version None)
Quarter: 2004Q4

REPORT INFORMATION
  Report Type: 
  Country: None (occurrence: None)
  Receive Date: 20041027
  Receipt Date: 20041019
  Transmission Date: 20050328
  Serious: Yes (Hospitalization)
  Sender: FDA-Public Use
  Company Number: CIP04002078

PATIENT
  Age: 82 Year
  Sex: Female

DRUGS (6)
  1. MACRODANTIN [Suspect]
     Dosage: DAILY, ORAL
     Route: 048
     Dates: start: 19980101, end: 20030101
  2. PLAVIX [Concomitant]
  3. TOPROL-XL [Concomitant]
  4. LEVOXYL [Concomitant]
  5. FOLIC ACID (FOKLIC ACID) [Concomitant]
  6. LOVASTAATIN (LOVASTATIN) [Concomitant]

REACTIONS (6)
  - BLADDER DISORDER [None]
  - CARDIAC DISORDER [None]
  - EMPHYSEMA [None]
  - HIP SURGERY [None]
  - LUNG NEOPLASM [None]
  - PULMONARY FUNCTION TEST DECREASED [None]
